FAERS Safety Report 6551172-4 (Version None)
Quarter: 2010Q1

REPORT INFORMATION
  Report Type: 
  Country: None (occurrence: None)
  Receive Date: 20100121
  Receipt Date: 20100107
  Transmission Date: 20100710
  Serious: Yes (Hospitalization, Other)
  Sender: FDA-Public Use
  Company Number: 2010AL000241

PATIENT
  Age: 32 Year
  Sex: Female

DRUGS (3)
  1. FLUOXETINE [Suspect]
     Indication: DEPRESSION
     Dosage: 600 MG;X1
     Dates: end: 20060210
  2. METHYLPHENIDATE [Concomitant]
  3. HYDROCHLORIDE [Concomitant]

REACTIONS (6)
  - HALLUCINATION [None]
  - HYPERVENTILATION [None]
  - INCORRECT DOSE ADMINISTERED [None]
  - MALAISE [None]
  - PARANOIA [None]
  - TACHYCARDIA [None]
